FAERS Safety Report 8049118-5 (Version None)
Quarter: 2012Q1

REPORT INFORMATION
  Report Type: 
  Country: None (occurrence: None)
  Receive Date: 20120117
  Receipt Date: 20120109
  Transmission Date: 20120608
  Serious: Yes (Hospitalization, Other)
  Sender: FDA-Public Use
  Company Number: US-BAYER-2010-000605

PATIENT
  Age: 47 Year
  Sex: Female
  Weight: 113.38 kg

DRUGS (6)
  1. YASMIN [Suspect]
     Indication: CONTRACEPTION
     Dosage: UNK
     Dates: start: 20000101, end: 20080101
  2. ORTHO TRI-CYCLEN [Concomitant]
     Dosage: UNK
     Dates: start: 20000422, end: 20031227
  3. ORTHO TRI-CYCLEN [Concomitant]
     Dosage: UNK
     Dates: start: 20040320
  4. TRI-SPRINTEC [Concomitant]
     Dosage: UNK
     Dates: start: 20040710
  5. OVCON-35 [Concomitant]
     Dosage: UNK
     Dates: start: 20040611
  6. ESTROSTEP [Concomitant]
     Dosage: UNK
     Dates: start: 20041029, end: 20041226

REACTIONS (3)
  - INJURY [None]
  - DEEP VEIN THROMBOSIS [None]
  - PULMONARY EMBOLISM [None]
